FAERS Safety Report 4584237-7 (Version None)
Quarter: 2005Q1

REPORT INFORMATION
  Report Type: 
  Country: None (occurrence: None)
  Receive Date: 20050125
  Receipt Date: 20041028
  Transmission Date: 20050727
  Serious: No
  Sender: FDA-Public Use
  Company Number: USA041082471

PATIENT
  Age: 66 Year
  Sex: Female
  Weight: 66 kg

DRUGS (3)
  1. FORTEO [Suspect]
     Indication: OSTEOPOROSIS
     Dosage: 20 UG/1 DAY
     Dates: start: 20040801
  2. POSTURE-D [Concomitant]
  3. VIOXX [Concomitant]

REACTIONS (4)
  - OSTEOARTHRITIS [None]
  - PHARYNGOLARYNGEAL PAIN [None]
  - RASH PAPULAR [None]
  - RHINORRHOEA [None]
